FAERS Safety Report 10255894 (Version 3)
Quarter: 2014Q3

REPORT INFORMATION
  Report Type: Report from Study
  Country: US (occurrence: US)
  Receive Date: 20140624
  Receipt Date: 20140718
  Transmission Date: 20150326
  Serious: Yes (Hospitalization)
  Sender: FDA-Public Use
  Company Number: US-BRISTOL-MYERS SQUIBB COMPANY-20456380

PATIENT
  Age: 70 Year
  Sex: Female
  Weight: 54.42 kg

DRUGS (1)
  1. ABATACEPT SUBQ INJECTION 125MG/ML [Suspect]
     Active Substance: ABATACEPT
     Indication: RHEUMATOID ARTHRITIS
     Route: 058
     Dates: end: 20140503

REACTIONS (3)
  - Hip fracture [Unknown]
  - Injection site mass [Unknown]
  - Weight decreased [Unknown]

NARRATIVE: CASE EVENT DATE: 20140415
